FAERS Safety Report 15285512 (Version 1)
Quarter: 2018Q3

REPORT INFORMATION
  Report Type: Spontaneous
  Country: US (occurrence: US)
  Receive Date: 20180801
  Receipt Date: 20180801
  Transmission Date: 20181010
  Serious: Yes (Other)
  Sender: FDA-Public Use
  Company Number: None

PATIENT
  Age: 72 Year
  Sex: Female
  Weight: 89.1 kg

DRUGS (22)
  1. DETROL LA [Concomitant]
     Active Substance: TOLTERODINE TARTRATE
  2. DOCUSATE [Concomitant]
     Active Substance: DOCUSATE
  3. FOLIC ACID. [Concomitant]
     Active Substance: FOLIC ACID
  4. NORCO [Concomitant]
     Active Substance: ACETAMINOPHEN\HYDROCODONE BITARTRATE
  5. SERTRALINE [Concomitant]
     Active Substance: SERTRALINE HYDROCHLORIDE
  6. IBRANCE [Suspect]
     Active Substance: PALBOCICLIB
     Indication: BREAST CANCER
     Route: 048
     Dates: start: 20180710
  7. SENNA [Concomitant]
     Active Substance: SENNA LEAF\SENNOSIDES\SENNOSIDES A AND B
  8. LEVOTHYROXINE. [Concomitant]
     Active Substance: LEVOTHYROXINE
  9. ARANESP [Concomitant]
     Active Substance: DARBEPOETIN ALFA
  10. MELATONIN [Concomitant]
     Active Substance: MELATONIN
  11. THERAGRAN?M [Concomitant]
     Active Substance: VITAMINS
  12. ATORVASTATIN [Concomitant]
     Active Substance: ATORVASTATIN
  13. CALCIUM + VITAMIN D [Concomitant]
     Active Substance: CALCIUM\VITAMIN D
  14. CARVEDILOL. [Concomitant]
     Active Substance: CARVEDILOL
  15. LETROZOLE. [Concomitant]
     Active Substance: LETROZOLE
  16. LOSARTAN. [Concomitant]
     Active Substance: LOSARTAN
  17. ESTRACE [Concomitant]
     Active Substance: ESTRADIOL
  18. OMEPRAZOLE. [Concomitant]
     Active Substance: OMEPRAZOLE
  19. KEPPRA [Concomitant]
     Active Substance: LEVETIRACETAM
  20. LANTUS [Concomitant]
     Active Substance: INSULIN GLARGINE
  21. LYRICA [Concomitant]
     Active Substance: PREGABALIN
  22. NOVOLOG [Concomitant]
     Active Substance: INSULIN ASPART

REACTIONS (4)
  - Diarrhoea [None]
  - Nausea [None]
  - Memory impairment [None]
  - Fatigue [None]
